FAERS Safety Report 10301819 (Version 1)
Quarter: 2014Q3

REPORT INFORMATION
  Report Type: Spontaneous
  Country: US (occurrence: None)
  Receive Date: 20140709
  Receipt Date: 20140709
  Transmission Date: 20150326
  Serious: Yes (Other)
  Sender: FDA-Public Use
  Company Number: None

PATIENT
  Age: 48 Year
  Sex: Female

DRUGS (1)
  1. NEURONTIN [Suspect]
     Active Substance: GABAPENTIN
     Dosage: DENTAL NOVOCAINE W EPI

REACTIONS (10)
  - Reaction to preservatives [None]
  - Tremor [None]
  - Malaise [None]
  - Angina pectoris [None]
  - Discomfort [None]
  - Cardiac discomfort [None]
  - Cardiac disorder [None]
  - Heart rate increased [None]
  - Dizziness [None]
  - Drug interaction [None]

NARRATIVE: CASE EVENT DATE: 20140701
